FAERS Safety Report 5964441-3 (Version None)
Quarter: 2008Q4

REPORT INFORMATION
  Report Type: 
  Country: None (occurrence: None)
  Receive Date: 20081122
  Receipt Date: 20081122
  Transmission Date: 20090506
  Serious: Yes (Hospitalization)
  Sender: FDA-Public Use
  Company Number: None

PATIENT
  Sex: Female
  Weight: 115 kg

DRUGS (6)
  1. CYCLOPHOSPHAMIDE [Suspect]
     Dosage: 1875 MG
  2. DOXORUBICIN HYDROCHLORIDE [Suspect]
     Dosage: 104 MG
  3. TAXOL [Suspect]
     Dosage: 378 MG
  4. NEULASTA [Suspect]
     Dosage: 6 MG
  5. BACTRIM DS [Suspect]
     Dosage: 19200 MG
  6. G-CSF(FILGRASTIM, AMGEN) [Suspect]
     Dosage: 12602 MCG

REACTIONS (3)
  - PULMONARY EMBOLISM [None]
  - PULMONARY OEDEMA [None]
  - THERAPEUTIC AGENT TOXICITY [None]
